FAERS Safety Report 4986968-3 (Version None)
Quarter: 2006Q2

REPORT INFORMATION
  Report Type: 
  Country: None (occurrence: None)
  Receive Date: 20060501
  Receipt Date: 20060221
  Transmission Date: 20061013
  Serious: Yes (Hospitalization)
  Sender: FDA-Public Use
  Company Number: JP-BRISTOL-MYERS SQUIBB COMPANY-13299045

PATIENT
  Age: 67 Year
  Sex: Female

DRUGS (11)
  1. ENDOXAN [Suspect]
     Indication: BREAST CANCER
     Route: 042
     Dates: start: 20060125
  2. FARMORUBICIN [Suspect]
     Indication: BREAST CANCER
     Route: 042
     Dates: start: 20060125
  3. NEU-UP [Suspect]
     Indication: NEUTROPENIA
     Dates: start: 20060206
  4. NAUZELIN [Suspect]
     Indication: VOMITING
     Dates: start: 20060125, end: 20060131
  5. PRIMPERAN TAB [Suspect]
     Indication: VOMITING
     Dates: start: 20060125, end: 20060131
  6. NAVOBAN [Suspect]
     Indication: VOMITING
     Dates: start: 20060125, end: 20060129
  7. DECADRON [Suspect]
     Indication: VOMITING
     Dates: start: 20060125, end: 20060127
  8. DOGMATYL [Suspect]
     Indication: ANXIETY DISORDER
     Dates: start: 19920101
  9. CEROCRAL [Suspect]
     Indication: ANXIETY DISORDER
     Dates: start: 19920301
  10. AMOBAN [Suspect]
     Indication: INSOMNIA
     Dates: start: 19920301
  11. MAGNESIUM OXIDE [Concomitant]

REACTIONS (6)
  - ANOREXIA [None]
  - MOVEMENT DISORDER [None]
  - MUSCULAR WEAKNESS [None]
  - NEUTROPHIL COUNT DECREASED [None]
  - PYREXIA [None]
  - VOMITING [None]
